FAERS Safety Report 20200568 (Version 1)
Quarter: 2021Q4

REPORT INFORMATION
  Report Type: Report from Study
  Country: US (occurrence: US)
  Receive Date: 20211217
  Receipt Date: 20211217
  Transmission Date: 20220303
  Serious: Yes (Hospitalization, Other)
  Sender: FDA-Public Use
  Company Number: US-BRISTOL-MYERS SQUIBB COMPANY-BMS-2021-134881

PATIENT
  Age: 71 Year
  Sex: Male
  Weight: 108.84 kg

DRUGS (7)
  1. APIXABAN [Suspect]
     Active Substance: APIXABAN
     Indication: Cerebrovascular accident prophylaxis
     Dosage: UNK UNK, BID
     Route: 048
     Dates: start: 202110
  2. GLIMEPIRIDE [Concomitant]
     Active Substance: GLIMEPIRIDE
     Indication: Diabetes mellitus
     Dosage: UNK, QD (MORNING)
     Route: 065
  3. VICTOZA [Concomitant]
     Active Substance: LIRAGLUTIDE
     Indication: Diabetes mellitus
     Dosage: UNK
     Route: 065
  4. ATORVASTATIN [Concomitant]
     Active Substance: ATORVASTATIN
     Indication: Product used for unknown indication
     Dosage: UNK
     Route: 065
  5. OMEPRAZOLE [Concomitant]
     Active Substance: OMEPRAZOLE
     Indication: Product used for unknown indication
     Dosage: UNK
     Route: 065
  6. ROPINIROLE [Concomitant]
     Active Substance: ROPINIROLE
     Indication: Product used for unknown indication
     Dosage: UNK
     Route: 065
  7. NOVOLIN 70/30 [Concomitant]
     Active Substance: INSULIN HUMAN
     Indication: Diabetes mellitus
     Dosage: UNK
     Route: 065

REACTIONS (4)
  - Cellulitis [Unknown]
  - COVID-19 pneumonia [Recovered/Resolved]
  - Syncope [Unknown]
  - Hiccups [Unknown]

NARRATIVE: CASE EVENT DATE: 20211001
